FAERS Safety Report 24346664 (Version 1)
Quarter: 2024Q3

REPORT INFORMATION
  Report Type: Spontaneous
  Country: GB (occurrence: GB)
  Receive Date: 20240921
  Receipt Date: 20240921
  Transmission Date: 20241017
  Serious: Yes (Other)
  Sender: ACCORD
  Company Number: None

PATIENT
  Age: 19 Year

DRUGS (1)
  1. SERTRALINE [Suspect]
     Active Substance: SERTRALINE HYDROCHLORIDE
     Indication: Product used for unknown indication
     Dosage: 100MG, ACCORD HEALTHCARE

REACTIONS (3)
  - Photophobia [Not Recovered/Not Resolved]
  - Rash pruritic [Not Recovered/Not Resolved]
  - Diarrhoea [Not Recovered/Not Resolved]
